FAERS Safety Report 21510427 (Version 1)
Quarter: 2022Q4

REPORT INFORMATION
  Report Type: Report from Study
  Country: US (occurrence: US)
  Receive Date: 20221026
  Receipt Date: 20221026
  Transmission Date: 20230113
  Serious: Yes (Other)
  Sender: FDA-Public Use
  Company Number: US-JAZZ-2022-US-027264

PATIENT
  Sex: Female

DRUGS (5)
  1. XYREM [Suspect]
     Active Substance: SODIUM OXYBATE
     Indication: Narcolepsy
     Dosage: UNK
  2. XYREM [Suspect]
     Active Substance: SODIUM OXYBATE
     Indication: Cataplexy
  3. XYREM [Suspect]
     Active Substance: SODIUM OXYBATE
     Indication: Somnolence
  4. ADVAIR HFA [Concomitant]
     Active Substance: FLUTICASONE PROPIONATE\SALMETEROL XINAFOATE
     Indication: Product used for unknown indication
     Dosage: 500-50 DISKUS
     Dates: start: 20061121
  5. ALBUTEROL SULFATE [Concomitant]
     Active Substance: ALBUTEROL SULFATE
     Indication: Product used for unknown indication
     Dosage: 0.63 MG/3 ML SOL
     Dates: start: 20031121

REACTIONS (11)
  - Overdose [Unknown]
  - Emergency care [Unknown]
  - Mydriasis [Unknown]
  - Foaming at mouth [Unknown]
  - Nervousness [Unknown]
  - Depression [Unknown]
  - Confusional state [Unknown]
  - Tremor [Unknown]
  - Vomiting [Unknown]
  - Panic attack [Unknown]
  - Treatment noncompliance [Unknown]
